FAERS Safety Report 9485720 (Version 1)
Quarter: 2013Q3

REPORT INFORMATION
  Report Type: Spontaneous
  Country: US (occurrence: None)
  Receive Date: 20130827
  Receipt Date: 20130827
  Transmission Date: 20140515
  Serious: Yes (Hospitalization)
  Sender: FDA-Public Use
  Company Number: None

PATIENT
  Age: 86 Year
  Sex: Male
  Weight: 80 kg

DRUGS (10)
  1. PRADAXA [Suspect]
     Indication: ATRIAL FIBRILLATION
     Route: 048
     Dates: end: 20130510
  2. VICODIN [Concomitant]
  3. LYRICA [Concomitant]
  4. LOPRESSER [Concomitant]
  5. BETAPAIE [Concomitant]
  6. VESICARE [Concomitant]
  7. FLOMAX [Concomitant]
  8. LEVAQUIN [Concomitant]
  9. PROTOMIX [Concomitant]
  10. PREDNISONE [Concomitant]

REACTIONS (1)
  - Haematochezia [None]
